FAERS Safety Report 11488849 (Version 1)
Quarter: 2015Q3

REPORT INFORMATION
  Report Type: Spontaneous
  Country: US (occurrence: US)
  Receive Date: 20150910
  Receipt Date: 20150910
  Transmission Date: 20151125
  Serious: No
  Sender: FDA-Public Use
  Company Number: US-ROCHE-1457412

PATIENT
  Sex: Female

DRUGS (5)
  1. RIBAVIRIN. [Suspect]
     Active Substance: RIBAVIRIN
     Indication: CHRONIC HEPATITIS C
     Dosage: 1200 MG DAILY IN DIVIDED DOSES
     Route: 048
     Dates: start: 20140826
  2. SOVALDI [Suspect]
     Active Substance: SOFOSBUVIR
     Indication: CHRONIC HEPATITIS C
     Route: 065
     Dates: start: 20140826
  3. PEGASYS [Suspect]
     Active Substance: PEGINTERFERON ALFA-2A
     Indication: CHRONIC HEPATITIS C
     Route: 058
     Dates: start: 20140826
  4. OXYCODONE [Concomitant]
     Active Substance: OXYCODONE
     Dosage: UPTO 8 TABLETS PER DAY
     Route: 065
  5. KLONOPIN [Suspect]
     Active Substance: CLONAZEPAM
     Indication: INSOMNIA
     Route: 065

REACTIONS (9)
  - Vulvovaginal swelling [Unknown]
  - Vomiting [Unknown]
  - Dry mouth [Unknown]
  - Insomnia [Unknown]
  - Decreased appetite [Unknown]
  - Arthralgia [Unknown]
  - Ephelides [Unknown]
  - Vulvovaginal pruritus [Unknown]
  - Myalgia [Unknown]
